FAERS Safety Report 5155816-3 (Version None)
Quarter: 2006Q4

REPORT INFORMATION
  Report Type: 
  Country: None (occurrence: None)
  Receive Date: 20061109
  Receipt Date: 20061025
  Transmission Date: 20070319
  Serious: Yes (Hospitalization)
  Sender: FDA-Public Use
  Company Number: 20063290

PATIENT
  Sex: Male

DRUGS (3)
  1. LIORESAL [Suspect]
     Indication: MUSCLE SPASTICITY
     Dosage: 300 MCG DAILY INTRATHECAL
     Route: 037
  2. ORAL BACLOFEN [Concomitant]
  3. XANAX [Concomitant]

REACTIONS (4)
  - BLADDER DILATATION [None]
  - MUSCLE SPASTICITY [None]
  - PRIAPISM [None]
  - WRONG TECHNIQUE IN DRUG USAGE PROCESS [None]
